FAERS Safety Report 5390480-X (Version None)
Quarter: 2007Q3

REPORT INFORMATION
  Report Type: 
  Country: None (occurrence: None)
  Receive Date: 20070718
  Receipt Date: 20060525
  Transmission Date: 20080115
  Serious: No
  Sender: FDA-Public Use
  Company Number: US-KINGPHARMUSA00001-K200600694

PATIENT

DRUGS (5)
  1. LEVOXYL [Suspect]
     Indication: HYPOTHYROIDISM
     Dosage: 50 MCG, QD
     Route: 048
     Dates: start: 20040101
  2. XALATAN [Concomitant]
     Indication: GLAUCOMA
     Dosage: UNK, UNK
     Route: 047
     Dates: start: 20060101
  3. CLIMARA [Concomitant]
     Dosage: .05 UNK, UNK
     Route: 061
  4. MACRODANTIN [Concomitant]
     Indication: CYSTITIS
  5. MULTIVITAMIN [Concomitant]

REACTIONS (9)
  - AGITATION [None]
  - ARTHRALGIA [None]
  - BLOOD OESTROGEN DECREASED [None]
  - BLOOD THYROID STIMULATING HORMONE DECREASED [None]
  - DRUG INEFFECTIVE [None]
  - DYSGEUSIA [None]
  - FATIGUE [None]
  - INSOMNIA [None]
  - OEDEMA PERIPHERAL [None]
